FAERS Safety Report 10522960 (Version 2)
Quarter: 2015Q3

REPORT INFORMATION
  Report Type: Spontaneous
  Country: GB (occurrence: GB)
  Receive Date: 20141016
  Receipt Date: 20150824
  Transmission Date: 20151125
  Serious: Yes (Other)
  Sender: FDA-Public Use
  Company Number: PHHY2014GB132641

PATIENT
  Age: 82 Year
  Sex: Female

DRUGS (6)
  1. AMOXICILLIN. [Suspect]
     Active Substance: AMOXICILLIN
     Indication: TOOTH INFECTION
     Dosage: 500 MG, TID
     Dates: start: 20140903, end: 20140909
  2. RAMIPRIL. [Concomitant]
     Active Substance: RAMIPRIL
     Dosage: BEEN ON FOR 3-4 YEARS
     Dates: start: 2010
  3. BENDROFLUMETHIAZIDE [Concomitant]
     Active Substance: BENDROFLUMETHIAZIDE
     Indication: HYPERTENSION
     Dosage: 2.5 MG, QD
     Dates: start: 2010
  4. BENDROFLUMETHIAZIDE [Concomitant]
     Active Substance: BENDROFLUMETHIAZIDE
     Dosage: BEEN ON FOR 3-4 YEARS
     Dates: start: 2010
  5. RAMIPRIL. [Concomitant]
     Active Substance: RAMIPRIL
     Indication: HYPERTENSION
     Dosage: 2.5 MG, QD
     Dates: start: 2010
  6. AMOXICILLIN. [Suspect]
     Active Substance: AMOXICILLIN
     Dosage: COMPLETED A 7 DAY COURSE
     Dates: start: 20140903, end: 20140909

REACTIONS (7)
  - Dysphonia [Recovered/Resolved]
  - Oral candidiasis [Recovered/Resolved]
  - Dizziness [Recovered/Resolved]
  - Nausea [Recovered/Resolved]
  - Cough [Recovered/Resolved]
  - Throat irritation [Recovered/Resolved]
  - Vomiting [Recovered/Resolved]
